FAERS Safety Report 6120913-2 (Version None)
Quarter: 2009Q1

REPORT INFORMATION
  Report Type: 
  Country: None (occurrence: None)
  Receive Date: 20090313
  Receipt Date: 20090302
  Transmission Date: 20090719
  Serious: Yes (Disabling)
  Sender: FDA-Public Use
  Company Number: 230002K09CHE

PATIENT
  Sex: Male

DRUGS (1)
  1. REBIF [Suspect]
     Dosage: 44 MCG

REACTIONS (3)
  - COORDINATION ABNORMAL [None]
  - INJECTION SITE HAEMATOMA [None]
  - INJECTION SITE PAIN [None]
